APPROVED DRUG PRODUCT: VYDUO
Active Ingredient: NEBIVOLOL HYDROCHLORIDE; VALSARTAN
Strength: EQ 5MG BASE;80MG
Dosage Form/Route: TABLET;ORAL
Application: A210596 | Product #001
Applicant: PRINSTON PHARMACEUTICAL INC
Approved: Sep 19, 2022 | RLD: No | RS: No | Type: RX